FAERS Safety Report 13845780 (Version 1)
Quarter: 2017Q3

REPORT INFORMATION
  Report Type: Spontaneous
  Country: US (occurrence: US)
  Receive Date: 20170808
  Receipt Date: 20170808
  Transmission Date: 20171127
  Serious: No
  Sender: FDA-Public Use
  Company Number: US-ROCHE-705771

PATIENT
  Sex: Female
  Weight: 63.5 kg

DRUGS (4)
  1. BONIVA [Suspect]
     Active Substance: IBANDRONATE SODIUM
     Route: 048
  2. KEFLEX [Concomitant]
     Active Substance: CEPHALEXIN
     Route: 065
  3. ADVIL [Concomitant]
     Active Substance: IBUPROFEN
     Route: 065
  4. BONIVA [Suspect]
     Active Substance: IBANDRONATE SODIUM
     Indication: OSTEOPOROSIS
     Dosage: TAKEN FOR SEVERAL YEARS
     Route: 048

REACTIONS (1)
  - Tooth infection [Not Recovered/Not Resolved]
